FAERS Safety Report 6087128-8 (Version None)
Quarter: 2009Q1

REPORT INFORMATION
  Report Type: 
  Country: None (occurrence: None)
  Receive Date: 20090211
  Receipt Date: 20090202
  Transmission Date: 20090719
  Serious: Yes (Other)
  Sender: FDA-Public Use
  Company Number: CHPA2009US02220

PATIENT
  Age: 39 Year
  Sex: Male

DRUGS (4)
  1. THERAFLU COLD AND COUGH (NCH)(DEXTROMETHORPHAN, PHENIRAMINE, PHENYLEPH [Suspect]
     Indication: INFLUENZA
     Dosage: 1 DF, QD, ORAL
     Route: 048
     Dates: start: 20090202
  2. THERAFLU COLD AND COUGH (NCH)(DEXTROMETHORPHAN, PHENIRAMINE, PHENYLEPH [Suspect]
     Indication: NASOPHARYNGITIS
     Dosage: 1 DF, QD, ORAL
     Route: 048
     Dates: start: 20090202
  3. ADVIL LIQUI-GELS [Suspect]
     Dates: start: 20090202
  4. ^DT COLD AND MULTISYMPTOMS^() [Suspect]
     Dates: start: 20090202

REACTIONS (5)
  - ABNORMAL DREAMS [None]
  - HALLUCINATION [None]
  - HYPERHIDROSIS [None]
  - INSOMNIA [None]
  - NIGHTMARE [None]
